FAERS Safety Report 11364429 (Version 2)
Quarter: 2016Q3

REPORT INFORMATION
  Report Type: Spontaneous
  Country: US (occurrence: US)
  Receive Date: 20150811
  Receipt Date: 20160816
  Transmission Date: 20161109
  Serious: No
  Sender: FDA-Public Use
  Company Number: US-ENDO PHARMACEUTICALS INC.-2014ZX000318

PATIENT
  Age: 60 Year
  Sex: Female

DRUGS (1)
  1. SUMAVEL DOSEPRO [Suspect]
     Active Substance: SUMATRIPTAN SUCCINATE
     Indication: HEADACHE
     Route: 065

REACTIONS (5)
  - Device malfunction [Recovered/Resolved]
  - Drug ineffective [Not Recovered/Not Resolved]
  - Injection site scar [Not Recovered/Not Resolved]
  - Thirst [Unknown]
  - Dysgeusia [Unknown]
